FAERS Safety Report 6100841-9 (Version None)
Quarter: 2009Q1

REPORT INFORMATION
  Report Type: 
  Country: None (occurrence: None)
  Receive Date: 20090304
  Receipt Date: 20090225
  Transmission Date: 20090719
  Serious: Yes (Other)
  Sender: FDA-Public Use
  Company Number: GB-RANBAXY-2009RR-22166

PATIENT
  Age: 72 Year
  Sex: Male

DRUGS (3)
  1. AMOXICILLIN [Suspect]
     Indication: HELICOBACTER INFECTION
     Dosage: UNK
     Dates: start: 20051026
  2. METRONIDAZOLE [Suspect]
     Indication: HELICOBACTER INFECTION
     Dosage: UNK
     Dates: start: 20040710
  3. METRONIDAZOLE [Suspect]
     Dosage: UNK
     Dates: start: 20051026

REACTIONS (1)
  - APLASTIC ANAEMIA [None]
